FAERS Safety Report 7078804-9 (Version None)
Quarter: 2010Q4

REPORT INFORMATION
  Report Type: 
  Country: None (occurrence: None)
  Receive Date: 20101102
  Receipt Date: 20101029
  Transmission Date: 20110411
  Serious: Yes (Other)
  Sender: FDA-Public Use
  Company Number: US-PFIZER INC-2010049967

PATIENT
  Sex: Female
  Weight: 52.154 kg

DRUGS (6)
  1. TOVIAZ [Suspect]
     Indication: HYPERTONIC BLADDER
     Dosage: 8 MG, 1X/DAY
     Route: 048
     Dates: start: 20100401
  2. TOVIAZ [Suspect]
     Indication: MULTIPLE SCLEROSIS
  3. ZOCOR [Concomitant]
     Indication: BLOOD CHOLESTEROL INCREASED
     Dosage: 20 MG, 1X/DAY
     Route: 048
     Dates: start: 20100101
  4. EXELON [Concomitant]
     Indication: COGNITIVE DISORDER
     Dosage: 4.6 MG, 1X/DAY
     Route: 062
  5. KLONOPIN [Concomitant]
     Indication: RESTLESS LEGS SYNDROME
     Dosage: 2 MG, UNK
     Route: 048
  6. OMEPRAZOLE [Concomitant]
     Indication: GASTROOESOPHAGEAL REFLUX DISEASE
     Dosage: 20 MG, 1X/DAY
     Route: 048
     Dates: start: 20100101

REACTIONS (5)
  - CONSTIPATION [None]
  - DRY MOUTH [None]
  - MICTURITION DISORDER [None]
  - URINARY INCONTINENCE [None]
  - WEIGHT INCREASED [None]
